FAERS Safety Report 8163117-4 (Version None)
Quarter: 2012Q1

REPORT INFORMATION
  Report Type: 
  Country: None (occurrence: None)
  Receive Date: 20120224
  Receipt Date: 20120215
  Transmission Date: 20120608
  Serious: Yes (Hospitalization)
  Sender: FDA-Public Use
  Company Number: US-ABBOTT-12P-163-0905761-00

PATIENT
  Age: 36 Year
  Sex: Female

DRUGS (9)
  1. IRON [Concomitant]
     Indication: PRODUCT USED FOR UNKNOWN INDICATION
  2. AZOPT [Concomitant]
     Indication: GLAUCOMA
  3. HUMIRA [Suspect]
     Indication: RHEUMATOID ARTHRITIS
     Route: 058
     Dates: start: 20100201
  4. METFORMIN HCL [Concomitant]
     Indication: PRODUCT USED FOR UNKNOWN INDICATION
  5. HUMIRA [Suspect]
     Route: 058
     Dates: start: 20100301
  6. COMBIGAN [Concomitant]
     Indication: GLAUCOMA
  7. METHOTREXATE [Concomitant]
     Indication: RHEUMATOID ARTHRITIS
  8. GLYBURIDE [Concomitant]
     Indication: DIABETES MELLITUS
  9. JANUVIA [Concomitant]
     Indication: DIABETES MELLITUS

REACTIONS (7)
  - PNEUMONIA [None]
  - MUSCULOSKELETAL STIFFNESS [None]
  - PAIN [None]
  - OEDEMA PERIPHERAL [None]
  - EYE PRURITUS [None]
  - INJECTION SITE PAIN [None]
  - HYPERSENSITIVITY [None]
